FAERS Safety Report 4852786-X (Version None)
Quarter: 2005Q4

REPORT INFORMATION
  Report Type: 
  Country: None (occurrence: None)
  Receive Date: 20051214
  Receipt Date: 20051209
  Transmission Date: 20060501
  Serious: Yes (Life-Threatening, Other)
  Sender: FDA-Public Use
  Company Number: JP-SANOFI-SYNTHELABO-F01200502715

PATIENT
  Sex: Male
  Weight: 48 kg

DRUGS (3)
  1. OXALIPLATIN [Suspect]
     Indication: COLON CANCER
     Route: 042
     Dates: start: 20050613, end: 20050613
  2. FLUOROURACIL [Suspect]
     Dosage: 400 MG/BODY=281.7MG/M2 IV BOLUS AND 600 MG/BODY=422.5 MG/M2IV 22 HOURS CONTINUOUS INFUSION, Q2W
     Route: 042
     Dates: start: 20050613, end: 20050613
  3. CALCIUM LEVOFOLINATE [Suspect]
     Route: 042
     Dates: start: 20050613, end: 20050613

REACTIONS (3)
  - GENERALISED OEDEMA [None]
  - LEUKOPENIA [None]
  - PLEURAL EFFUSION [None]
